FAERS Safety Report 14157122 (Version 5)
Quarter: 2019Q1

REPORT INFORMATION
  Report Type: Spontaneous
  Country: HR (occurrence: HR)
  Receive Date: 20171103
  Receipt Date: 20190306
  Transmission Date: 20190417
  Serious: Yes (Life-Threatening, Hospitalization, Other)
  Sender: FDA-Public Use
  Company Number: HR-CELGENEUS-HRV-20171008632

PATIENT
  Age: 79 Year
  Sex: Male
  Weight: 80 kg

DRUGS (8)
  1. LACTATED RINGERS SOLUTION [Concomitant]
     Active Substance: CALCIUM CHLORIDE\POTASSIUM CHLORIDE\SODIUM CHLORIDE\SODIUM LACTATE
     Indication: PROPHYLAXIS
     Route: 041
     Dates: start: 20171022, end: 20171022
  2. BISOPROLOL [Concomitant]
     Active Substance: BISOPROLOL
     Indication: ISCHAEMIC CARDIOMYOPATHY
     Dosage: 1.25 MILLIGRAM
     Route: 048
     Dates: start: 1990
  3. ALLOPURINOL. [Concomitant]
     Active Substance: ALLOPURINOL
     Indication: TUMOUR LYSIS SYNDROME
     Dosage: 200 MILLIGRAM
     Route: 048
     Dates: start: 20171022, end: 20171023
  4. NORMAL SALINE [Concomitant]
     Active Substance: SODIUM CHLORIDE
     Indication: TUMOUR LYSIS SYNDROME
     Route: 041
     Dates: start: 20171023, end: 20171023
  5. VENETOCLAX. [Concomitant]
     Active Substance: VENETOCLAX
     Indication: ACUTE MYELOID LEUKAEMIA
     Route: 065
  6. AZACITIDINE. [Suspect]
     Active Substance: AZACITIDINE
     Indication: ACUTE MYELOID LEUKAEMIA
     Dosage: 75 MILLIGRAM/SQ. METER
     Route: 058
     Dates: start: 20171023, end: 20171023
  7. METFORMIN [Concomitant]
     Active Substance: METFORMIN HYDROCHLORIDE
     Indication: TYPE 2 DIABETES MELLITUS
     Dosage: 1700 MILLIGRAM
     Route: 048
     Dates: start: 1990
  8. BISOPROLOL [Concomitant]
     Active Substance: BISOPROLOL
     Indication: ATRIAL FIBRILLATION

REACTIONS (3)
  - Ischaemic cardiomyopathy [Recovered/Resolved]
  - Atrial fibrillation [Recovered/Resolved]
  - Cardiac failure [Recovered/Resolved]

NARRATIVE: CASE EVENT DATE: 20171023
